FAERS Safety Report 6219736-5 (Version None)
Quarter: 2009Q2

REPORT INFORMATION
  Report Type: 
  Country: None (occurrence: None)
  Receive Date: 20090605
  Receipt Date: 20090604
  Transmission Date: 20091009
  Serious: Yes (Other)
  Sender: FDA-Public Use
  Company Number: 1000006639

PATIENT
  Age: 60 Year
  Sex: Female

DRUGS (2)
  1. THYROID TAB [Suspect]
     Indication: HYPOTHYROIDISM
     Dosage: 180 MG (180 MG, 1 IN 1 D), ORAL; ORAL
     Route: 048
     Dates: start: 20060101, end: 20090101
  2. NATURAL HORMONES (NOS) [Concomitant]

REACTIONS (4)
  - DEPRESSION [None]
  - FATIGUE [None]
  - SUICIDAL IDEATION [None]
  - WEIGHT INCREASED [None]
